FAERS Safety Report 14332217 (Version 3)
Quarter: 2018Q1

REPORT INFORMATION
  Report Type: Spontaneous
  Country: IT (occurrence: IT)
  Receive Date: 20171228
  Receipt Date: 20180217
  Transmission Date: 20180509
  Serious: Yes (Life-Threatening, Other)
  Sender: FDA-Public Use
  Company Number: IT-AUROBINDO-AUR-APL-2017-47605

PATIENT
  Age: 4 Month
  Weight: 5 kg

DRUGS (30)
  1. AMIODARONE [Suspect]
     Active Substance: AMIODARONE
     Indication: ARRHYTHMIA
  2. LIDOCAINE. [Suspect]
     Active Substance: LIDOCAINE
     Indication: ELECTROCARDIOGRAM QT PROLONGED
  3. MEXILETINE [Suspect]
     Active Substance: MEXILETINE
     Indication: ELECTROCARDIOGRAM QT PROLONGED
  4. METOPROLOL. [Suspect]
     Active Substance: METOPROLOL
     Indication: TORSADE DE POINTES
  5. LIDOCAINE. [Suspect]
     Active Substance: LIDOCAINE
     Indication: CARDIOMYOPATHY
  6. FLECAINIDE [Suspect]
     Active Substance: FLECAINIDE
     Indication: TORSADE DE POINTES
  7. FLECAINIDE [Suspect]
     Active Substance: FLECAINIDE
     Indication: CARDIOMYOPATHY
  8. LIDOCAINE. [Suspect]
     Active Substance: LIDOCAINE
     Indication: ARRHYTHMIA
  9. MEXILETINE [Suspect]
     Active Substance: MEXILETINE
     Indication: CARDIOMYOPATHY
     Dosage: ()
     Route: 065
  10. MEXILETINE [Suspect]
     Active Substance: MEXILETINE
     Indication: VENTRICULAR ARRHYTHMIA
  11. MEXILETINE [Suspect]
     Active Substance: MEXILETINE
     Indication: WOLFF-PARKINSON-WHITE SYNDROME
  12. METOPROLOL. [Suspect]
     Active Substance: METOPROLOL
     Indication: CARDIOMYOPATHY
  13. METOPROLOL. [Suspect]
     Active Substance: METOPROLOL
     Indication: ARRHYTHMIA
  14. AMIODARONE [Suspect]
     Active Substance: AMIODARONE
     Indication: WOLFF-PARKINSON-WHITE SYNDROME
  15. AMIODARONE [Suspect]
     Active Substance: AMIODARONE
     Indication: VENTRICULAR ARRHYTHMIA
  16. LIDOCAINE. [Suspect]
     Active Substance: LIDOCAINE
     Indication: TORSADE DE POINTES
  17. MEXILETINE [Suspect]
     Active Substance: MEXILETINE
     Indication: TORSADE DE POINTES
  18. FLECAINIDE [Suspect]
     Active Substance: FLECAINIDE
     Indication: VENTRICULAR TACHYCARDIA
     Dosage: UNK
     Route: 065
  19. AMIODARONE [Suspect]
     Active Substance: AMIODARONE
     Indication: CARDIOMYOPATHY
     Dosage: ()
     Route: 065
  20. AMIODARONE [Suspect]
     Active Substance: AMIODARONE
     Indication: ELECTROCARDIOGRAM QT PROLONGED
  21. LIDOCAINE. [Suspect]
     Active Substance: LIDOCAINE
     Indication: VENTRICULAR ARRHYTHMIA
     Dosage: ()
     Route: 065
  22. FLECAINIDE [Suspect]
     Active Substance: FLECAINIDE
     Indication: ARRHYTHMIA
     Dosage: ()
  23. MEXILETINE [Suspect]
     Active Substance: MEXILETINE
     Indication: ARRHYTHMIA
  24. FLECAINIDE [Suspect]
     Active Substance: FLECAINIDE
     Indication: ELECTROCARDIOGRAM QT PROLONGED
  25. FLECAINIDE [Suspect]
     Active Substance: FLECAINIDE
     Indication: WOLFF-PARKINSON-WHITE SYNDROME
  26. METOPROLOL. [Suspect]
     Active Substance: METOPROLOL
     Indication: VENTRICULAR ARRHYTHMIA
     Dosage: ()
     Route: 065
  27. METOPROLOL. [Suspect]
     Active Substance: METOPROLOL
     Indication: WOLFF-PARKINSON-WHITE SYNDROME
  28. METOPROLOL. [Suspect]
     Active Substance: METOPROLOL
     Indication: ELECTROCARDIOGRAM QT PROLONGED
  29. AMIODARONE [Suspect]
     Active Substance: AMIODARONE
     Indication: TORSADE DE POINTES
  30. LIDOCAINE. [Suspect]
     Active Substance: LIDOCAINE
     Indication: WOLFF-PARKINSON-WHITE SYNDROME

REACTIONS (1)
  - Drug ineffective [Unknown]
